FAERS Safety Report 12714048 (Version 2)
Quarter: 2016Q3

REPORT INFORMATION
  Report Type: Report from Study
  Country: AU (occurrence: AU)
  Receive Date: 20160905
  Receipt Date: 20160912
  Transmission Date: 20161109
  Serious: Yes (Other)
  Sender: FDA-Public Use
  Company Number: AU-ROCHE-1825165

PATIENT
  Sex: Female

DRUGS (16)
  1. ACTEMRA [Suspect]
     Active Substance: TOCILIZUMAB
     Indication: RHEUMATOID ARTHRITIS
     Route: 042
     Dates: start: 20141107
  2. LYRICA [Concomitant]
     Active Substance: PREGABALIN
     Dosage: LAST DOSE ON 03/FEB/2016
     Route: 065
  3. ASPIRIN. [Concomitant]
     Active Substance: ASPIRIN
     Dosage: LAST DOSE ON 20/APR/2016
     Route: 065
  4. PREDNISONE. [Concomitant]
     Active Substance: PREDNISONE
     Dosage: LAST DOSE ON 30/DEC/2014
     Route: 065
  5. SIGUENT HYCOR [Concomitant]
     Dosage: LAST DOSE ON 22/OCT/2014
     Route: 065
  6. SLOW-K (POTASSIUM CHLORIDE) [Concomitant]
     Indication: HYPOKALAEMIA
     Dosage: LAST DOSE ON 22/OCT/2014
     Route: 065
  7. MEGAFOL [Concomitant]
     Active Substance: FOLIC ACID
     Route: 065
  8. PREDNISONE. [Concomitant]
     Active Substance: PREDNISONE
     Dosage: LAST DOSE ON 29/AUG/2016
     Route: 065
  9. VENTOLIN [Concomitant]
     Active Substance: ALBUTEROL SULFATE
     Dosage: 2 PUFFS QID?LAST DOSE ON 25/AUG/2016
     Route: 065
  10. ENDEP [Concomitant]
     Active Substance: AMITRIPTYLINE HYDROCHLORIDE
     Dosage: LAST DOSE ON 16/AUG/2016
     Route: 065
  11. KLACID (CLARITHROMYCIN) [Concomitant]
     Active Substance: CLARITHROMYCIN
     Dosage: LAST DOSE ON 25AUG/2016
     Route: 065
  12. PANADOL [Concomitant]
     Active Substance: ACETAMINOPHEN
     Dosage: LAST DOSE ON 23/NOV/2015
     Route: 065
  13. SERETIDE MDI [Concomitant]
     Active Substance: FLUTICASONE PROPIONATE\SALMETEROL XINAFOATE
     Dosage: 250MCG-25M, 2 PUFFS TWICE DAY?LAST DOSE ON 25/AUG/2016
     Route: 065
  14. PREDNISONE. [Concomitant]
     Active Substance: PREDNISONE
     Dosage: LAST DOSE ON 29/OCT/2015
     Route: 065
  15. METHOTREXATE. [Concomitant]
     Active Substance: METHOTREXATE
     Dosage: 50 MG/2ML?LAST DOSE ON 20/APR/2016
     Route: 065
  16. METFORMIN [Concomitant]
     Active Substance: METFORMIN HYDROCHLORIDE
     Dosage: LAST DOSE ON 23/NOV/2015
     Route: 065

REACTIONS (6)
  - Hypercholesterolaemia [Unknown]
  - Osteoporosis [Unknown]
  - Gastrooesophageal reflux disease [Unknown]
  - Hypertension [Unknown]
  - Asthma [Recovered/Resolved]
  - Lower respiratory tract infection [Recovered/Resolved]
